FAERS Safety Report 7597726-8 (Version None)
Quarter: 2011Q3

REPORT INFORMATION
  Report Type: 
  Country: None (occurrence: None)
  Receive Date: 20110708
  Receipt Date: 20110628
  Transmission Date: 20111222
  Serious: Yes (Hospitalization)
  Sender: FDA-Public Use
  Company Number: US-GLAXOSMITHKLINE-A0935253A

PATIENT
  Age: 72 Year
  Sex: Male

DRUGS (8)
  1. AFINITOR [Concomitant]
  2. AMBIEN [Concomitant]
  3. DESMOPRESSIN [Concomitant]
  4. CELEXA [Concomitant]
  5. VOTRIENT [Suspect]
     Indication: RENAL CANCER
     Dosage: 800MG PER DAY
     Route: 048
     Dates: start: 20100317
  6. SYNTHROID [Concomitant]
  7. ZOMETA [Concomitant]
  8. PRILOSEC [Concomitant]

REACTIONS (1)
  - ADVERSE EVENT [None]
